FAERS Safety Report 6160543-X (Version None)
Quarter: 2009Q2

REPORT INFORMATION
  Report Type: 
  Country: None (occurrence: None)
  Receive Date: 20090416
  Receipt Date: 20090407
  Transmission Date: 20091009
  Serious: Yes (Other)
  Sender: FDA-Public Use
  Company Number: 2009JP001653

PATIENT
  Age: 77 Year
  Sex: Female
  Weight: 61 kg

DRUGS (3)
  1. VESICARE [Suspect]
     Indication: HYPERTONIC BLADDER
     Dosage: 5 MG, UID/QD, ORAL
     Route: 048
     Dates: start: 20070614, end: 20071026
  2. NORVASC (AMLODIPINE BESILATE) PER ORAL NOS [Concomitant]
  3. LIPITOR [Concomitant]

REACTIONS (2)
  - CALCULUS URETERIC [None]
  - RESIDUAL URINE VOLUME INCREASED [None]
